FAERS Safety Report 6491827-3 (Version None)
Quarter: 2009Q4

REPORT INFORMATION
  Report Type: 
  Country: None (occurrence: None)
  Receive Date: 20091210
  Receipt Date: 20091130
  Transmission Date: 20100525
  Serious: Yes (Hospitalization)
  Sender: FDA-Public Use
  Company Number: 233184J09USA

PATIENT
  Age: 57 Year
  Sex: Male
  Weight: 95 kg

DRUGS (18)
  1. REBIF [Suspect]
     Indication: MULTIPLE SCLEROSIS
     Dosage: 44 MCG, 3 IN 1 WEEKS, SUBCUTANEOUS
     Route: 058
     Dates: start: 20060626, end: 20060724
  2. REBIF [Suspect]
     Indication: MULTIPLE SCLEROSIS
     Dosage: 44 MCG, 3 IN 1 WEEKS, SUBCUTANEOUS
     Route: 058
     Dates: start: 20070920, end: 20090126
  3. REBIF [Suspect]
     Indication: MULTIPLE SCLEROSIS
     Dosage: 44 MCG, 3 IN 1 WEEKS, SUBCUTANEOUS
     Route: 058
     Dates: start: 20090527
  4. PNEUMONIA SHOT (ALL OTHER NON-THERAPEUTIC PRODUCTS) [Concomitant]
  5. NEXIUM [Concomitant]
  6. METHOTREXATE SODIUM [Concomitant]
  7. HYDROCHLOROTHIAZIDE (HYDROCHLOROTHAZIDE) [Concomitant]
  8. REQUIP [Concomitant]
  9. PROBIOTIC COMPLEX (ALL OTHER THERAPEUTIC PRODUCTS) [Concomitant]
  10. POTASSIUM (POTASSIUM CHLORIDE) [Concomitant]
  11. GARLIC (ALLIUM SATIVUM) [Concomitant]
  12. FLAXSEED OIL (LINUM USITATISSIUMUM SEED OIL) [Concomitant]
  13. NAPROXEN [Concomitant]
  14. ATROVENT [Concomitant]
  15. GABAPENTIN [Concomitant]
  16. TERAZOSIN HCL [Concomitant]
  17. FEXOFENADINE HCL [Concomitant]
  18. CITALOPRAM (CITALOPRAM /00582601/) [Concomitant]

REACTIONS (7)
  - ANKLE FRACTURE [None]
  - DECREASED ACTIVITY [None]
  - DEEP VEIN THROMBOSIS [None]
  - DISCOMFORT [None]
  - FALL [None]
  - PULMONARY EMBOLISM [None]
  - PYREXIA [None]
